FAERS Safety Report 13158697 (Version 1)
Quarter: 2017Q1

REPORT INFORMATION
  Report Type: Spontaneous
  Country: FR (occurrence: FR)
  Receive Date: 20170127
  Receipt Date: 20170127
  Transmission Date: 20170428
  Serious: Yes (Other)
  Sender: FDA-Public Use
  Company Number: FR-009507513-1404FRA013983

PATIENT
  Sex: Female
  Weight: 52 kg

DRUGS (1)
  1. NEXPLANON [Suspect]
     Active Substance: ETONOGESTREL
     Indication: CONTRACEPTION
     Dosage: 68 MG, FOR 3 YEARS
     Route: 058
     Dates: start: 20111031, end: 20140422

REACTIONS (3)
  - Endometrial thickening [Unknown]
  - Anaemia [Recovered/Resolved]
  - Menometrorrhagia [Unknown]

NARRATIVE: CASE EVENT DATE: 2012
